FAERS Safety Report 11325564 (Version 2)
Quarter: 2015Q3

REPORT INFORMATION
  Report Type: Spontaneous
  Country: US (occurrence: US)
  Receive Date: 20150731
  Receipt Date: 20150807
  Transmission Date: 20151125
  Serious: Yes (Death, Other)
  Sender: FDA-Public Use
  Company Number: US-JNJFOC-20150718228

PATIENT
  Sex: Female

DRUGS (1)
  1. BENADRYL [Suspect]
     Active Substance: DIPHENHYDRAMINE HYDROCHLORIDE
     Indication: DEMENTIA
     Dosage: 3X PER DAY FOR 3 MONTHS
     Route: 048

REACTIONS (4)
  - Death [Fatal]
  - Product use issue [Unknown]
  - Unresponsive to stimuli [Unknown]
  - Fatigue [Unknown]
